FAERS Safety Report 17198433 (Version 2)
Quarter: 2025Q3

REPORT INFORMATION
  Report Type: Spontaneous
  Country: EU (occurrence: EU)
  Receive Date: 20191225
  Receipt Date: 20250901
  Transmission Date: 20251020
  Serious: Yes (Other)
  Sender: AUROBINDO
  Company Number: EU-ESTEVE-2019-09242

PATIENT
  Age: 36 Year
  Sex: Female

DRUGS (8)
  1. IBUPROFEN [Interacting]
     Active Substance: IBUPROFEN
     Indication: Product used for unknown indication
     Route: 065
  2. METHYLDOPA [Interacting]
     Active Substance: METHYLDOPA
     Indication: Hypertension
     Route: 065
  3. METHYLDOPA [Interacting]
     Active Substance: METHYLDOPA
     Dosage: 500 MILLIGRAM, 3 TIMES A DAY
     Route: 065
  4. LABETALOL [Interacting]
     Active Substance: LABETALOL
     Indication: Hypertension
     Route: 065
  5. LABETALOL [Interacting]
     Active Substance: LABETALOL
     Dosage: 100 MILLIGRAM, FOUR TIMES/DAY
     Route: 065
  6. LABETALOL [Interacting]
     Active Substance: LABETALOL
     Dosage: 100 MILLIGRAM, 3 TIMES A DAY
     Route: 065
  7. LABETALOL [Interacting]
     Active Substance: LABETALOL
     Dosage: 100 MILLIGRAM, TWO TIMES A DAY
     Route: 065
  8. METHYLERGOMETRINE [Suspect]
     Active Substance: METHYLERGONOVINE MALEATE
     Indication: Postpartum haemorrhage
     Route: 065

REACTIONS (5)
  - Drug interaction [Recovered/Resolved]
  - Dyspnoea [Recovered/Resolved]
  - Palpitations [Recovered/Resolved]
  - Pulmonary arterial hypertension [Recovered/Resolved]
  - Hypertension [Recovered/Resolved]
